FAERS Safety Report 7460546-9 (Version None)
Quarter: 2011Q2

REPORT INFORMATION
  Report Type: 
  Country: None (occurrence: None)
  Receive Date: 20110505
  Receipt Date: 20101220
  Transmission Date: 20111010
  Serious: Yes (Hospitalization)
  Sender: FDA-Public Use
  Company Number: US-AMGEN-QUU404061

PATIENT
  Age: 60 Year
  Sex: Female
  Weight: 72.6 kg

DRUGS (13)
  1. LEVOTHYROXINE SODIUM [Concomitant]
     Dosage: 112 A?G, UNK
     Dates: start: 20000101
  2. METHOTREXATE [Concomitant]
     Dosage: 15 MG, QWK
     Dates: start: 19990101, end: 20020101
  3. ENBREL [Suspect]
     Indication: PSORIASIS
     Dosage: 25 MG, 2 TIMES/WK
     Dates: start: 20060401, end: 20070601
  4. CALCIPOTRIENE/BETAMETHASONE DIPROPIONATE [Concomitant]
     Dosage: UNK UNK, UNK
     Dates: start: 20060501
  5. DIAZEPAM [Concomitant]
     Dosage: 10 MG, UNK
     Dates: start: 20080601
  6. ZYRTEC [Concomitant]
     Dosage: 10 MG, UNK
  7. MOTRIN IB [Concomitant]
     Dosage: 200 MG, UNK
  8. CALCIUM [Concomitant]
  9. ENBREL [Suspect]
     Indication: PSORIATIC ARTHROPATHY
     Dosage: 25 MG, 2 TIMES/WK
     Route: 058
     Dates: start: 20000701, end: 20030930
  10. DIAZEPAM [Concomitant]
     Dosage: UNK
     Dates: start: 20000101, end: 20020101
  11. CLARITHROMYCIN [Concomitant]
     Dosage: UNK UNK, UNK
     Dates: start: 20080601
  12. CLARITHROMYCIN [Concomitant]
     Dosage: UNK
     Dates: start: 20000101, end: 20020101
  13. ASPIRIN [Concomitant]
     Dosage: 81 MG, UNK

REACTIONS (6)
  - JOINT SPRAIN [None]
  - PRURITUS [None]
  - PSORIATIC ARTHROPATHY [None]
  - BREAST CANCER [None]
  - PAIN IN EXTREMITY [None]
  - SKIN DISORDER [None]
